FAERS Safety Report 7208141-0 (Version None)
Quarter: 2011Q1

REPORT INFORMATION
  Report Type: 
  Country: None (occurrence: None)
  Receive Date: 20110104
  Receipt Date: 20101228
  Transmission Date: 20110831
  Serious: Yes (Life-Threatening, Hospitalization)
  Sender: FDA-Public Use
  Company Number: US-US-EMD SERONO, INC.-233283K09USA

PATIENT
  Sex: Male

DRUGS (10)
  1. REBIF [Suspect]
     Indication: MULTIPLE SCLEROSIS
     Route: 058
     Dates: start: 20090323, end: 20090323
  2. ZOCOR [Concomitant]
     Indication: FEMORAL ARTERY OCCLUSION
     Route: 065
  3. ZOCOR [Concomitant]
     Indication: THROMBOSIS
  4. LEXAPRO [Concomitant]
     Route: 065
  5. AUGMENTIN '125' [Concomitant]
     Route: 065
  6. PLAVIX [Concomitant]
     Indication: THROMBOSIS
  7. REBIF [Suspect]
     Route: 065
     Dates: start: 20090413
  8. REBIF [Suspect]
     Route: 058
  9. ACETAMINOPHEN [Concomitant]
     Indication: PREMEDICATION
     Route: 065
  10. PLAVIX [Concomitant]
     Indication: FEMORAL ARTERY OCCLUSION
     Route: 065
     Dates: start: 20090201

REACTIONS (18)
  - URINARY TRACT INFECTION [None]
  - CLOSTRIDIAL INFECTION [None]
  - MULTIPLE SCLEROSIS RELAPSE [None]
  - SINUSITIS [None]
  - PNEUMONIA [None]
  - ELECTROLYTE IMBALANCE [None]
  - BLOOD GLUCOSE ABNORMAL [None]
  - HYPOTHERMIA [None]
  - BLOOD POTASSIUM INCREASED [None]
  - SEPSIS [None]
  - EPISTAXIS [None]
  - DELUSIONAL DISORDER, UNSPECIFIED TYPE [None]
  - OEDEMA PERIPHERAL [None]
  - HEART RATE IRREGULAR [None]
  - DYSPHAGIA [None]
  - AGITATION [None]
  - DISORIENTATION [None]
  - PLATELET COUNT DECREASED [None]
